FAERS Safety Report 6917979-6 (Version None)
Quarter: 2010Q3

REPORT INFORMATION
  Report Type: 
  Country: None (occurrence: None)
  Receive Date: 20100810
  Receipt Date: 20091102
  Transmission Date: 20110219
  Serious: Yes (Hospitalization, Other)
  Sender: FDA-Public Use
  Company Number: US-PFIZER INC-2009277015

PATIENT
  Sex: Female
  Weight: 75.737 kg

DRUGS (8)
  1. TOVIAZ [Suspect]
     Indication: BLADDER DISORDER
     Dosage: 8 MG, 1X/DAY
     Route: 048
     Dates: start: 20090801
  2. TOVIAZ [Suspect]
     Indication: URINARY INCONTINENCE
  3. DETROL [Suspect]
     Indication: BLADDER DISORDER
  4. PREVACID [Concomitant]
     Indication: GASTROOESOPHAGEAL REFLUX DISEASE
     Route: 048
  5. LORAZEPAM [Concomitant]
     Indication: SLEEP DISORDER
     Route: 048
  6. ELMIRON [Concomitant]
     Indication: CYSTITIS INTERSTITIAL
     Dosage: FREQUENCY: 3X/DAILY,
     Route: 048
  7. ASPIRIN [Concomitant]
     Indication: CARDIAC DISORDER
     Route: 048
  8. HUMULIN N [Concomitant]
     Indication: DIABETES MELLITUS
     Dosage: FREQUENCY: 2X/DAILY,
     Route: 058

REACTIONS (6)
  - ABDOMINAL PAIN [None]
  - DIZZINESS [None]
  - DRUG HYPERSENSITIVITY [None]
  - DRUG INEFFECTIVE [None]
  - GASTROOESOPHAGEAL REFLUX DISEASE [None]
  - VISION BLURRED [None]
